FAERS Safety Report 21919570 (Version 1)
Quarter: 2023Q1

REPORT INFORMATION
  Report Type: Spontaneous
  Country: US (occurrence: None)
  Receive Date: 20230126
  Receipt Date: 20230126
  Transmission Date: 20230417
  Serious: No
  Sender: FDA-Public Use
  Company Number: None

PATIENT

DRUGS (1)
  1. LEVALBUTEROL TARTRATE [Suspect]
     Active Substance: LEVALBUTEROL TARTRATE
     Indication: Asthma
     Dosage: OTHER STRENGTH : 40 CYC;?OTHER QUANTITY : 2AN;?FREQUENCY : DAILY;?
     Dates: start: 20230124

REACTIONS (2)
  - Abdominal distension [None]
  - Dyspnoea [None]
